FAERS Safety Report 17907289 (Version 10)
Quarter: 2021Q4

REPORT INFORMATION
  Report Type: Report from Study
  Country: US (occurrence: US)
  Receive Date: 20200617
  Receipt Date: 20211223
  Transmission Date: 20220303
  Serious: Yes (Hospitalization)
  Sender: FDA-Public Use
  Company Number: US-ASTELLAS-2020US019322

PATIENT
  Age: 74 Year
  Sex: Male

DRUGS (23)
  1. ENFORTUMAB VEDOTIN [Suspect]
     Active Substance: ENFORTUMAB VEDOTIN
     Indication: Transitional cell carcinoma
     Route: 042
     Dates: start: 20190116, end: 20200526
  2. ENFORTUMAB VEDOTIN [Suspect]
     Active Substance: ENFORTUMAB VEDOTIN
     Route: 042
     Dates: start: 20200707, end: 20210112
  3. PEMBROLIZUMAB [Suspect]
     Active Substance: PEMBROLIZUMAB
     Indication: Transitional cell carcinoma
     Route: 042
     Dates: start: 20190116, end: 20200526
  4. PEMBROLIZUMAB [Suspect]
     Active Substance: PEMBROLIZUMAB
     Route: 042
     Dates: start: 20200707, end: 20210112
  5. VITAMIN D [Concomitant]
     Active Substance: VITAMIN D NOS
     Indication: Vitamin supplementation
     Route: 048
     Dates: start: 1995
  6. GARLIC [Concomitant]
     Active Substance: GARLIC
     Indication: Supplementation therapy
     Route: 048
     Dates: start: 2000
  7. CHONDROITIN SULFATE (BOVINE)\GLUCOSAMINE HYDROCHLORIDE [Concomitant]
     Active Substance: CHONDROITIN SULFATE (BOVINE)\GLUCOSAMINE HYDROCHLORIDE
     Indication: Supplementation therapy
     Dosage: UNK UNK, ONCE DAILY (750/597 MG)
     Route: 048
     Dates: start: 1995
  8. MAGNESIUM [Concomitant]
     Active Substance: MAGNESIUM
     Indication: Mineral supplementation
     Route: 048
     Dates: start: 1995
  9. FISH OIL\OMEGA-3 FATTY ACIDS [Concomitant]
     Active Substance: FISH OIL\OMEGA-3 FATTY ACIDS
     Indication: Supplementation therapy
     Route: 048
     Dates: start: 2000
  10. ZINC [Concomitant]
     Active Substance: ZINC
     Indication: Product used for unknown indication
     Route: 048
     Dates: start: 1995
  11. ACAI [Concomitant]
     Active Substance: ACAI
     Indication: Supplementation therapy
     Route: 065
     Dates: start: 2012
  12. COENZYME Q10 [Concomitant]
     Active Substance: DIETARY SUPPLEMENT\UBIDECARENONE
     Indication: Supplementation therapy
     Route: 048
     Dates: start: 2012
  13. TYLENOL [Concomitant]
     Active Substance: ACETAMINOPHEN
     Indication: Neck pain
     Route: 048
     Dates: start: 1999
  14. MYCOSTATIN [Concomitant]
     Active Substance: NYSTATIN
     Indication: Stoma care
     Dosage: UNK UNK, AS NEEDED
     Route: 065
     Dates: start: 2018
  15. IMODIUM [Concomitant]
     Active Substance: LOPERAMIDE HYDROCHLORIDE
     Indication: Diarrhoea
     Route: 048
     Dates: start: 20190128
  16. LIDEX [Concomitant]
     Active Substance: FLUOCINONIDE
     Indication: Rash pruritic
     Dosage: 0.5 %, TWICE DAILY
     Route: 061
  17. ARTIFICIAL TEARS [Concomitant]
     Active Substance: GLYCERIN\HYPROMELLOSES\POLYETHYLENE GLYCOL 400
     Indication: Product used for unknown indication
     Dosage: 1 DROPS, OTHER (EVERY 4 HOURS)
     Route: 047
  18. ATARAX [Concomitant]
     Active Substance: HYDROXYZINE HYDROCHLORIDE
     Indication: Pruritus
     Dosage: 250 MG, OTHER (AT BEDTIME (QHS))
     Route: 048
     Dates: start: 20191020
  19. BETAMETHASONE [Concomitant]
     Active Substance: BETAMETHASONE
     Indication: Rash
     Dosage: UNK UNK, TWICE DAILY (AS NEEDED)
     Route: 061
     Dates: start: 20191025
  20. GABAPENTIN [Concomitant]
     Active Substance: GABAPENTIN
     Indication: Neuropathy peripheral
     Route: 048
     Dates: start: 20200305
  21. EPSOM SALT [Concomitant]
     Active Substance: MAGNESIUM SULFATE
     Indication: Cellulitis
     Dosage: UNK UNK, AS NEEDED
     Route: 065
     Dates: start: 20200330
  22. AMOXICILLIN [Concomitant]
     Active Substance: AMOXICILLIN
     Indication: Cellulitis
     Dosage: 500 MG, THRICE DAILY (10500 MG CUMULATIVE DOSE)
     Route: 065
     Dates: start: 20200516, end: 20200522
  23. ZYRTEC [Concomitant]
     Active Substance: CETIRIZINE HYDROCHLORIDE
     Indication: Product used for unknown indication
     Dosage: UNK UNK, UNKNOWN FREQ.
     Route: 065

REACTIONS (1)
  - Erythema multiforme [Recovered/Resolved]

NARRATIVE: CASE EVENT DATE: 20200530
